FAERS Safety Report 6053172-X (Version None)
Quarter: 2009Q1

REPORT INFORMATION
  Report Type: 
  Country: None (occurrence: None)
  Receive Date: 20090122
  Receipt Date: 20090106
  Transmission Date: 20090719
  Serious: Yes (Congenital Anomaly)
  Sender: FDA-Public Use
  Company Number: 1000003534

PATIENT

DRUGS (5)
  1. CITALOPRAM HYDROBROMIDE [Suspect]
     Dosage: TRANSPLACENTAL
     Route: 064
  2. SERTRALINE [Suspect]
     Dosage: TRANSPLACENTAL
     Route: 064
  3. ACETAMINOPHEN [Suspect]
     Dosage: TRANSPLACENTAL
     Route: 064
  4. FE (FERROUS GLYCINE SULFATE) [Concomitant]
  5. VITAMINS NOS [Concomitant]

REACTIONS (2)
  - MATERNAL DRUGS AFFECTING FOETUS [None]
  - PERSISTENT FOETAL CIRCULATION [None]
